FAERS Safety Report 6465250-1 (Version None)
Quarter: 2009Q4

REPORT INFORMATION
  Report Type: 
  Country: None (occurrence: None)
  Receive Date: 20091119
  Receipt Date: 20090916
  Transmission Date: 20100525
  Serious: No
  Sender: FDA-Public Use
  Company Number: WAES 0909USA02129

PATIENT
  Sex: Female

DRUGS (2)
  1. JANUVIA [Suspect]
     Indication: TYPE 2 DIABETES MELLITUS
     Dosage: PO
     Route: 048
  2. PRINIVIL [Suspect]
     Dosage: PO
     Route: 048

REACTIONS (4)
  - NASOPHARYNGITIS [None]
  - SPEECH DISORDER [None]
  - VOCAL CORD DISORDER [None]
  - WEIGHT DECREASED [None]
